FAERS Safety Report 23914643 (Version 1)
Quarter: 2024Q2

REPORT INFORMATION
  Report Type: Spontaneous
  Country: US (occurrence: None)
  Receive Date: 20240529
  Receipt Date: 20240529
  Transmission Date: 20240716
  Serious: Yes (Other)
  Sender: FDA-Public Use
  Company Number: 2024A123614

PATIENT
  Age: 24016 Day
  Sex: Male
  Weight: 82.5 kg

DRUGS (7)
  1. FARXIGA [Suspect]
     Active Substance: DAPAGLIFLOZIN PROPANEDIOL
     Route: 048
  2. TARPEYO [Suspect]
     Active Substance: BUDESONIDE
     Indication: Nephropathy
     Route: 048
     Dates: start: 20221117, end: 20231024
  3. TARPEYO [Suspect]
     Active Substance: BUDESONIDE
     Indication: Chronic kidney disease
     Route: 048
     Dates: start: 20221117, end: 20231024
  4. FISH OIL [Concomitant]
     Active Substance: FISH OIL
  5. LOSARTAN [Concomitant]
     Active Substance: LOSARTAN
  6. LOVASTATIN [Concomitant]
     Active Substance: LOVASTATIN
  7. CALCITRIOL [Concomitant]
     Active Substance: CALCITRIOL

REACTIONS (9)
  - Ketoacidosis [Unknown]
  - Gout [Unknown]
  - Foot fracture [Unknown]
  - Contusion [Unknown]
  - Peripheral swelling [Unknown]
  - Pollakiuria [Unknown]
  - Vomiting [Unknown]
  - Nausea [Unknown]
  - Weight decreased [Unknown]

NARRATIVE: CASE EVENT DATE: 20230805
